FAERS Safety Report 7764384-9 (Version None)
Quarter: 2011Q3

REPORT INFORMATION
  Report Type: 
  Country: None (occurrence: None)
  Receive Date: 20110919
  Receipt Date: 20110907
  Transmission Date: 20111222
  Serious: Yes (Other)
  Sender: FDA-Public Use
  Company Number: LEO-2011-00729

PATIENT
  Sex: Female

DRUGS (1)
  1. INNOHEP [Suspect]
     Indication: THROMBOPHLEBITIS SUPERFICIAL
     Dosage: 4500 IU, SUBCUTANEOUS
     Route: 058

REACTIONS (2)
  - OFF LABEL USE [None]
  - THROMBOPHLEBITIS SUPERFICIAL [None]
